FAERS Safety Report 17457847 (Version 3)
Quarter: 2020Q4

REPORT INFORMATION
  Report Type: Spontaneous
  Country: IT (occurrence: IT)
  Receive Date: 20200225
  Receipt Date: 20201125
  Transmission Date: 20210113
  Serious: Yes (Other)
  Sender: FDA-Public Use
  Company Number: IT-AMGEN-ITASP2020029258

PATIENT
  Age: 57 Year
  Sex: Female

DRUGS (6)
  1. KANJINTI [Suspect]
     Active Substance: TRASTUZUMAB-ANNS
     Indication: BONE NEOPLASM
     Dosage: UNK
     Route: 042
     Dates: start: 20190129
  2. NORVASC [Concomitant]
     Active Substance: AMLODIPINE BESYLATE
     Indication: ESSENTIAL HYPERTENSION
     Dosage: UNK
  3. HERCEPTIN [Suspect]
     Active Substance: TRASTUZUMAB
     Indication: BONE NEOPLASM
     Dosage: UNK
     Route: 042
     Dates: start: 20170525
  4. CERCHIO [Concomitant]
     Active Substance: CETIRIZINE HYDROCHLORIDE
     Dosage: UNK
  5. DIAMICRON [Concomitant]
     Active Substance: GLICLAZIDE
     Indication: DIABETES MELLITUS
     Dosage: UNK
  6. PERJETA [Suspect]
     Active Substance: PERTUZUMAB
     Indication: BONE NEOPLASM
     Dosage: UNK
     Route: 042
     Dates: start: 20170524

REACTIONS (8)
  - Pruritus [Unknown]
  - Asthenia [Unknown]
  - Off label use [Unknown]
  - Osteoporosis [Unknown]
  - Diarrhoea [Unknown]
  - Xerophthalmia [Unknown]
  - Onychoclasis [Unknown]
  - Insomnia [Unknown]

NARRATIVE: CASE EVENT DATE: 20190228
